FAERS Safety Report 12448512 (Version 2)
Quarter: 2020Q3

REPORT INFORMATION
  Report Type: Spontaneous
  Country: GB (occurrence: GB)
  Receive Date: 20160608
  Receipt Date: 20200804
  Transmission Date: 20201102
  Serious: Yes (Death)
  Sender: FDA-Public Use
  Company Number: GB-ALLERGAN-1658797US

PATIENT
  Sex: Female

DRUGS (1)
  1. BOTULINUM TOXIN TYPE A UNK [Suspect]
     Active Substance: BOTULINUM TOXIN TYPE A
     Indication: OESOPHAGEAL ACHALASIA
     Dosage: 100 UNITS, SINGLE

REACTIONS (6)
  - Mediastinitis [Fatal]
  - Aortic aneurysm rupture [Fatal]
  - Vascular pseudoaneurysm [Fatal]
  - Cardiac arrest [Fatal]
  - Oesophageal intramural haematoma [Fatal]
  - Off label use [Unknown]
